FAERS Safety Report 9124682 (Version 1)
Quarter: 2013Q1

REPORT INFORMATION
  Report Type: Spontaneous
  Country: IT (occurrence: IT)
  Receive Date: 20130227
  Receipt Date: 20130227
  Transmission Date: 20140127
  Serious: Yes (Hospitalization)
  Sender: FDA-Public Use
  Company Number: IT-BAXTER-2013BAX006915

PATIENT
  Age: 65 Year
  Sex: Female

DRUGS (2)
  1. ENDOXAN BAXTER [Suspect]
     Indication: BREAST CANCER
     Route: 042
     Dates: start: 20121108, end: 20130204
  2. DOCETAXEL [Suspect]
     Indication: BREAST CANCER
     Route: 042
     Dates: start: 20121108, end: 20130204

REACTIONS (2)
  - Neutropenia [Recovered/Resolved]
  - Bronchopneumonia [Recovered/Resolved]
